FAERS Safety Report 16187381 (Version 1)
Quarter: 2019Q2

REPORT INFORMATION
  Report Type: Spontaneous
  Country: IT (occurrence: IT)
  Receive Date: 20190412
  Receipt Date: 20190412
  Transmission Date: 20190711
  Serious: Yes (Hospitalization)
  Sender: FDA-Public Use
  Company Number: IT-TEVA-2019-IT-1034947

PATIENT
  Age: 42 Year
  Sex: Male

DRUGS (4)
  1. MADOPAR [Suspect]
     Active Substance: BENSERAZIDE HYDROCHLORIDE\LEVODOPA
     Indication: PARKINSON^S DISEASE
     Dosage: 3 DOSAGE FORMS DAILY;
     Dates: start: 20120101, end: 20180919
  2. AZILECT [Suspect]
     Active Substance: RASAGILINE MESYLATE
     Indication: PARKINSON^S DISEASE
     Dosage: 1 DOSAGE FORMS DAILY; STRENGTH:1 MG
     Dates: start: 20080101, end: 20180919
  3. PREGABALIN. [Concomitant]
     Active Substance: PREGABALIN
  4. STALEVO [Suspect]
     Active Substance: CARBIDOPA\ENTACAPONE\LEVODOPA
     Indication: PARKINSON^S DISEASE
     Dosage: 5 DOSAGE FORMS DAILY;
     Dates: start: 20120101, end: 20180919

REACTIONS (5)
  - Gambling disorder [Recovering/Resolving]
  - Dopamine dysregulation syndrome [Recovering/Resolving]
  - Delusional disorder, persecutory type [Recovering/Resolving]
  - Drug abuse [Recovering/Resolving]
  - Psychotic disorder [Recovering/Resolving]

NARRATIVE: CASE EVENT DATE: 20180221
